FAERS Safety Report 16143961 (Version 2)
Quarter: 2019Q2

REPORT INFORMATION
  Report Type: Report from Study
  Country: US (occurrence: US)
  Receive Date: 20190401
  Receipt Date: 20190415
  Transmission Date: 20190711
  Serious: Yes (Hospitalization)
  Sender: FDA-Public Use
  Company Number: US-ACTELION-A-US2017-159975

PATIENT
  Sex: Female
  Weight: 49.89 kg

DRUGS (8)
  1. UPTRAVI [Suspect]
     Active Substance: SELEXIPAG
     Dosage: 400 MCG, BID
     Route: 048
  2. UPTRAVI [Suspect]
     Active Substance: SELEXIPAG
     Indication: PULMONARY ARTERIAL HYPERTENSION
     Dosage: 1400 MCG, BID
     Route: 048
  3. UPTRAVI [Suspect]
     Active Substance: SELEXIPAG
     Dosage: 1600 MCG, BID
     Route: 048
     Dates: start: 20180207, end: 20180208
  4. UPTRAVI [Suspect]
     Active Substance: SELEXIPAG
     Dosage: 200 MCG, BID
     Route: 048
     Dates: start: 20190401
  5. ADCIRCA [Concomitant]
     Active Substance: TADALAFIL
  6. LETAIRIS [Concomitant]
     Active Substance: AMBRISENTAN
  7. UPTRAVI [Suspect]
     Active Substance: SELEXIPAG
     Dosage: 600 UNK, UNK
     Route: 048
  8. COUMADIN [Concomitant]
     Active Substance: WARFARIN SODIUM

REACTIONS (16)
  - Cerebral haemorrhage [Unknown]
  - Brain operation [Unknown]
  - Drug intolerance [Unknown]
  - Migraine [Unknown]
  - Headache [Unknown]
  - Diarrhoea [Unknown]
  - Insomnia [Unknown]
  - Condition aggravated [Unknown]
  - Nausea [Unknown]
  - Procedural pain [Unknown]
  - Vomiting [Unknown]
  - Muscle spasms [Unknown]
  - Product dose omission [Unknown]
  - Pain in jaw [Unknown]
  - Diplopia [Unknown]
  - Pain [Unknown]
